FAERS Safety Report 8383312-9 (Version None)
Quarter: 2012Q2

REPORT INFORMATION
  Report Type: 
  Country: None (occurrence: None)
  Receive Date: 20120524
  Receipt Date: 20120521
  Transmission Date: 20120825
  Serious: Yes (Other)
  Sender: FDA-Public Use
  Company Number: US-PFIZER INC-2012108150

PATIENT
  Sex: Male
  Weight: 86.2 kg

DRUGS (12)
  1. COREG [Concomitant]
     Dosage: 12.5 MG, 2X/DAY
  2. PLAVIX [Concomitant]
     Dosage: 75 MG, 1X/DAY
  3. OMEPRAZOLE [Concomitant]
     Dosage: 20 MG, UNK
  4. ACETAMINOPHEN [Concomitant]
     Dosage: 325 MG, AS NEEDED
  5. CALCIUM [Concomitant]
     Dosage: 600 MG, 1X/DAY
  6. TRICOR [Concomitant]
     Dosage: 145 MG, UNK
  7. DIOVAN HCT [Concomitant]
     Dosage: [VALSARTAN 320MG] /[HYDROCHLOROTHIAZIDE 12.5MG]; 1X/DAY
  8. TAMSULOSIN [Concomitant]
     Dosage: 0.4 MG, 1X/DAY
  9. ASPIRIN [Concomitant]
     Dosage: 81 MG, 1X/DAY
  10. FINASTERIDE [Concomitant]
     Dosage: 5 MG, 1X/DAY
  11. MAGNESIUM OXIDE [Concomitant]
     Dosage: 400 MG, 2X/DAY
  12. LIPITOR [Suspect]
     Indication: BLOOD CHOLESTEROL INCREASED
     Dosage: 20 MG, 1X/DAY
     Route: 048
     Dates: start: 20020101, end: 20020101

REACTIONS (5)
  - SENSATION OF HEAVINESS [None]
  - DIZZINESS [None]
  - HYPERTENSION [None]
  - OEDEMA PERIPHERAL [None]
  - PAIN IN EXTREMITY [None]
